FAERS Safety Report 6817856-5 (Version None)
Quarter: 2010Q3

REPORT INFORMATION
  Report Type: 
  Country: None (occurrence: None)
  Receive Date: 20100706
  Receipt Date: 20100701
  Transmission Date: 20110219
  Serious: Yes (Hospitalization, Other)
  Sender: FDA-Public Use
  Company Number: US-MERCK-1002USA03613

PATIENT
  Age: 55 Year
  Sex: Female
  Weight: 58 kg

DRUGS (3)
  1. FOSAMAX [Suspect]
     Indication: OSTEOPOROSIS
     Route: 048
     Dates: start: 19990101, end: 20060101
  2. FOSAMAX [Suspect]
     Route: 048
     Dates: start: 20001205
  3. ACTONEL [Suspect]
     Indication: OSTEOPOROSIS
     Route: 048
     Dates: start: 20060101, end: 20090101

REACTIONS (42)
  - ABSCESS [None]
  - ABSCESS JAW [None]
  - ANAEMIA [None]
  - ANXIETY [None]
  - ARTHRALGIA [None]
  - BACK PAIN [None]
  - CELLULITIS [None]
  - CHEST PAIN [None]
  - COMPRESSION FRACTURE [None]
  - DEPRESSION [None]
  - DYSPNOEA [None]
  - FALL [None]
  - FATIGUE [None]
  - FEMORAL NECK FRACTURE [None]
  - FISTULA DISCHARGE [None]
  - GASTROOESOPHAGEAL REFLUX DISEASE [None]
  - HAEMATOCHEZIA [None]
  - HALLUCINATION [None]
  - HIP FRACTURE [None]
  - HYPERLIPIDAEMIA [None]
  - HYPERTENSION [None]
  - HYPOAESTHESIA FACIAL [None]
  - HYPOKALAEMIA [None]
  - IMPAIRED HEALING [None]
  - JAW FRACTURE [None]
  - JOINT SPRAIN [None]
  - MALAISE [None]
  - MUSCULOSKELETAL PAIN [None]
  - ORAL INFECTION [None]
  - ORAL PAIN [None]
  - OSTEOMYELITIS [None]
  - OSTEONECROSIS OF JAW [None]
  - OSTEOPENIA [None]
  - PHARYNGITIS [None]
  - POSTMENOPAUSE [None]
  - RADIUS FRACTURE [None]
  - SENILE DEMENTIA [None]
  - SINUSITIS [None]
  - STRESS FRACTURE [None]
  - TENOSYNOVITIS STENOSANS [None]
  - TOOTH DISORDER [None]
  - VASCULAR INSUFFICIENCY [None]
